FAERS Safety Report 9389822 (Version 1)
Quarter: 2013Q3

REPORT INFORMATION
  Report Type: Spontaneous
  Country: US (occurrence: US)
  Receive Date: 20130708
  Receipt Date: 20130708
  Transmission Date: 20140515
  Serious: No
  Sender: FDA-Public Use
  Company Number: US-AMGEN-USASP2013044288

PATIENT
  Age: 30 Year
  Sex: Female

DRUGS (6)
  1. ENBREL [Suspect]
     Indication: PSORIASIS
     Dosage: 50 MG, 2 TIMES/WK
     Route: 058
     Dates: start: 20130121, end: 20130624
  2. PSORCON [Concomitant]
     Indication: PSORIASIS
     Dosage: UNK
     Route: 061
  3. DIPROSONE                          /00008502/ [Concomitant]
     Indication: PSORIASIS
     Dosage: UNK
     Route: 061
  4. ZYRTEC [Concomitant]
     Indication: PRURITUS
     Dosage: QD
     Route: 048
  5. BENADRYL                           /00000402/ [Concomitant]
     Indication: PRURITUS
     Dosage: QD
     Route: 048
  6. PROPRANOLOL [Concomitant]
     Indication: NEUROPATHY PERIPHERAL
     Dosage: QD
     Route: 048

REACTIONS (2)
  - Pruritus [Unknown]
  - Psoriasis [Unknown]
